FAERS Safety Report 9661671 (Version 1)
Quarter: 2013Q4

REPORT INFORMATION
  Report Type: Spontaneous
  Country: US (occurrence: US)
  Receive Date: 20131031
  Receipt Date: 20131031
  Transmission Date: 20140711
  Serious: No
  Sender: FDA-Public Use
  Company Number: US-PURDUE-USA-2010-0050105

PATIENT
  Sex: Male

DRUGS (2)
  1. OXYCONTIN (NDA 22-272) [Suspect]
     Indication: PRODUCT USED FOR UNKNOWN INDICATION
     Dosage: 560 MG, DAILY
     Dates: start: 201009
  2. OXYCONTIN (NDA 22-272) [Suspect]
     Dosage: 160 MG, UNK
     Dates: start: 201009

REACTIONS (2)
  - Muscle spasms [Unknown]
  - Nausea [Unknown]
